FAERS Safety Report 18051706 (Version 2)
Quarter: 2020Q3

REPORT INFORMATION
  Report Type: Spontaneous
  Country: US (occurrence: US)
  Receive Date: 20200722
  Receipt Date: 20200729
  Transmission Date: 20201103
  Serious: No
  Sender: FDA-Public Use
  Company Number: US-AMGEN INC.-USASP2020115812

PATIENT
  Age: 66 Year
  Sex: Female

DRUGS (3)
  1. RIZATRIPTAN. [Concomitant]
     Active Substance: RIZATRIPTAN
     Indication: ARTHRITIS
  2. RIZATRIPTAN. [Concomitant]
     Active Substance: RIZATRIPTAN
     Indication: MIGRAINE
  3. AIMOVIG [Suspect]
     Active Substance: ERENUMAB-AOOE
     Indication: MIGRAINE
     Dosage: 140 MILLIGRAM, QMO
     Route: 065
     Dates: start: 201908

REACTIONS (4)
  - Inappropriate schedule of product administration [Unknown]
  - Incorrect disposal of product [Unknown]
  - Device use error [Unknown]
  - Device difficult to use [Unknown]

NARRATIVE: CASE EVENT DATE: 201908
